FAERS Safety Report 7723163 (Version 6)
Quarter: 2014Q2

REPORT INFORMATION
  Report Type: Report from Study
  Country: US (occurrence: US)
  Receive Date: 20101220
  Receipt Date: 20140430
  Transmission Date: 20141212
  Serious: Yes (Death, Hospitalization, Other)
  Sender: FDA-Public Use
  Company Number: US-ALEXION-A201001596

PATIENT
  Age: 19 Year
  Sex: Female

DRUGS (2)
  1. SOLIRIS [Suspect]
     Indication: PAROXYSMAL NOCTURNAL HAEMOGLOBINURIA
     Dosage: 600 MG, QW
     Route: 042
     Dates: start: 20091016
  2. SOLIRIS [Suspect]
     Dosage: 900 MG, Q2W
     Route: 042
     Dates: end: 20101112

REACTIONS (7)
  - Endocarditis [Fatal]
  - Infection [Fatal]
  - Brain herniation [Fatal]
  - Cerebral thrombosis [Unknown]
  - Splenic vein thrombosis [Unknown]
  - Cerebral ischaemia [Unknown]
  - Gonorrhoea [Unknown]
